FAERS Safety Report 10142483 (Version 1)
Quarter: 2014Q2

REPORT INFORMATION
  Report Type: Spontaneous
  Country: US (occurrence: US)
  Receive Date: 20140430
  Receipt Date: 20140430
  Transmission Date: 20141212
  Serious: No
  Sender: FDA-Public Use
  Company Number: US-BIOGENIDEC-2014BI039804

PATIENT
  Sex: Female

DRUGS (4)
  1. AVONEX [Suspect]
     Indication: MULTIPLE SCLEROSIS
     Route: 030
  2. AVONEX [Suspect]
     Indication: MULTIPLE SCLEROSIS
     Route: 030
     Dates: start: 20060330, end: 20130216
  3. POPIRAMATE [Concomitant]
     Indication: EPILEPSY
  4. ALENDRONITE [Concomitant]
     Indication: EPILEPSY

REACTIONS (4)
  - Gastric disorder [Unknown]
  - Headache [Not Recovered/Not Resolved]
  - Depression [Recovered/Resolved]
  - Flushing [Unknown]
